FAERS Safety Report 17577582 (Version 2)
Quarter: 2020Q3

REPORT INFORMATION
  Report Type: Report from Study
  Country: None (occurrence: US)
  Receive Date: 20200324
  Receipt Date: 20200826
  Transmission Date: 20201102
  Serious: Yes (Hospitalization, Other)
  Sender: FDA-Public Use
  Company Number: US-ABBVIE-20K-163-3332952-00

PATIENT
  Sex: Female

DRUGS (2)
  1. HUMIRA [Suspect]
     Active Substance: ADALIMUMAB
     Dosage: DOSE INCREASED
     Route: 058
  2. HUMIRA [Suspect]
     Active Substance: ADALIMUMAB
     Indication: CROHN^S DISEASE
     Route: 058
     Dates: end: 2019

REACTIONS (11)
  - Pulmonary embolism [Recovered/Resolved]
  - Injection site pain [Unknown]
  - Incorrect dose administered [Unknown]
  - Crohn^s disease [Unknown]
  - Colectomy [Recovered/Resolved]
  - Illness [Recovered/Resolved]
  - Inflammation [Unknown]
  - Back disorder [Not Recovered/Not Resolved]
  - Nervousness [Unknown]
  - Deep vein thrombosis [Unknown]
  - Inflammatory marker increased [Recovered/Resolved]

NARRATIVE: CASE EVENT DATE: 2016
